FAERS Safety Report 8486420-7 (Version None)
Quarter: 2012Q3

REPORT INFORMATION
  Report Type: 
  Country: None (occurrence: None)
  Receive Date: 20120703
  Receipt Date: 20120618
  Transmission Date: 20120928
  Serious: Yes (Other)
  Sender: FDA-Public Use
  Company Number: CHPA2012US001620

PATIENT
  Sex: Female

DRUGS (1)
  1. EXCEDRIN BACK \+ BODY CAPLETS [Suspect]
     Indication: HEADACHE
     Dosage: 2-6 DF, PRN
     Route: 048
     Dates: start: 20110101, end: 20120116

REACTIONS (17)
  - URINARY TRACT INFECTION [None]
  - OFF LABEL USE [None]
  - MENSTRUATION IRREGULAR [None]
  - KIDNEY INFECTION [None]
  - MALAISE [None]
  - INSOMNIA [None]
  - PYREXIA [None]
  - DEHYDRATION [None]
  - HEPATIC ENZYME INCREASED [None]
  - GALLBLADDER ENLARGEMENT [None]
  - FEELING ABNORMAL [None]
  - NEPHRITIS [None]
  - SPLEEN DISORDER [None]
  - PALPITATIONS [None]
  - TREMOR [None]
  - ABDOMINAL PAIN LOWER [None]
  - FEELING JITTERY [None]
